FAERS Safety Report 7636168-3 (Version None)
Quarter: 2011Q3

REPORT INFORMATION
  Report Type: 
  Country: None (occurrence: None)
  Receive Date: 20110726
  Receipt Date: 20110718
  Transmission Date: 20111222
  Serious: Yes (Other)
  Sender: FDA-Public Use
  Company Number: MX-ROCHE-791600

PATIENT

DRUGS (3)
  1. BROMAZEPAM [Suspect]
     Route: 065
  2. CLONAZEPAM [Suspect]
     Route: 065
  3. DIAZEPAM [Suspect]
     Route: 065

REACTIONS (2)
  - ACCIDENTAL OVERDOSE [None]
  - ACCIDENTAL POISONING [None]
